FAERS Safety Report 9752446 (Version 1)
Quarter: 2013Q4

REPORT INFORMATION
  Report Type: Spontaneous
  Country: GB (occurrence: None)
  Receive Date: 20131211
  Receipt Date: 20131211
  Transmission Date: 20140711
  Serious: Yes (Life-Threatening, Other)
  Sender: FDA-Public Use
  Company Number: AUR-APL-2013-10190

PATIENT
  Age: 26 Year
  Sex: Male
  Weight: 69.85 kg

DRUGS (1)
  1. FLUOXETINE [Suspect]
     Indication: CHRONIC FATIGUE SYNDROME
     Route: 048
     Dates: start: 20130301, end: 20130401

REACTIONS (1)
  - Stevens-Johnson syndrome [None]
